FAERS Safety Report 6251727-0 (Version None)
Quarter: 2009Q3

REPORT INFORMATION
  Report Type: 
  Country: None (occurrence: None)
  Receive Date: 20090626
  Receipt Date: 20090330
  Transmission Date: 20100115
  Serious: Yes (Hospitalization)
  Sender: FDA-Public Use
  Company Number: 625016

PATIENT
  Age: 77 Year
  Sex: Female

DRUGS (1)
  1. XELODA [Suspect]
     Indication: COLON CANCER METASTATIC
     Dates: start: 20081001

REACTIONS (9)
  - BLISTER [None]
  - DIARRHOEA [None]
  - ERYTHEMA [None]
  - NAIL DISORDER [None]
  - OEDEMA PERIPHERAL [None]
  - PULMONARY THROMBOSIS [None]
  - SECRETION DISCHARGE [None]
  - SKIN DISCOLOURATION [None]
  - SKIN EXFOLIATION [None]
